FAERS Safety Report 7719449-4 (Version None)
Quarter: 2011Q3

REPORT INFORMATION
  Report Type: 
  Country: None (occurrence: None)
  Receive Date: 20110830
  Receipt Date: 20110822
  Transmission Date: 20111222
  Serious: Yes (Other)
  Sender: FDA-Public Use
  Company Number: PHHY2010US89778

PATIENT
  Sex: Female

DRUGS (6)
  1. LOSARTAN [Concomitant]
     Dosage: UNK UKN, OT
  2. GILENYA [Suspect]
     Dosage: 0.5 MG, QD
     Route: 048
     Dates: start: 20110112, end: 20110708
  3. GILENYA [Suspect]
     Dosage: 0.5 MG, QD
     Route: 048
  4. DILTIAZEM [Concomitant]
     Dosage: UNK UKN, OT
  5. GILENYA [Suspect]
     Indication: MULTIPLE SCLEROSIS
     Dosage: 0.5 MG, QD
     Route: 048
     Dates: start: 20101203
  6. PLAVIX [Concomitant]
     Dosage: UNK UKN, OT

REACTIONS (9)
  - ABASIA [None]
  - YELLOW SKIN [None]
  - MULTIPLE SCLEROSIS RELAPSE [None]
  - GAIT DISTURBANCE [None]
  - MYALGIA [None]
  - ARTHRALGIA [None]
  - DYSPNOEA [None]
  - BACK PAIN [None]
  - MENINGIOMA [None]
